FAERS Safety Report 8840297 (Version 3)
Quarter: 2012Q4

REPORT INFORMATION
  Report Type: 
  Country: US (occurrence: US)
  Receive Date: 20121015
  Receipt Date: 20121123
  Transmission Date: 20130627
  Serious: Yes (Hospitalization)
  Sender: FDA-Public Use
  Company Number: US-JNJFOC-20121005710

PATIENT
  Age: 81 Year
  Sex: Female
  Weight: 81.65 kg

DRUGS (7)
  1. SANDOZ FENTANYL TRANSDERMAL SYSTEM [Suspect]
     Indication: BACK PAIN
     Route: 062
     Dates: start: 201209, end: 20121005
  2. FENTANYL TRANSDERMAL SYSTEM [Suspect]
     Indication: BACK PAIN
     Route: 062
  3. MYLAN FENTANYL TRANSDERMAL SYSTEM [Suspect]
     Indication: BACK PAIN
     Route: 062
  4. MYLAN FENTANYL TRANSDERMAL SYSTEM [Suspect]
     Indication: BACK PAIN
     Route: 062
     Dates: end: 201209
  5. LORTAB [Concomitant]
     Indication: PAIN
     Dosage: 10-500 mg 4 times daily
     Route: 048
  6. VERAPAMIL [Concomitant]
     Indication: HYPERTENSION
     Route: 048
     Dates: start: 2009
  7. XANAX [Concomitant]
     Indication: SLEEP DISORDER
     Dosage: at night
     Route: 048
     Dates: start: 2002

REACTIONS (8)
  - Breast cancer stage II [Recovered/Resolved]
  - Poor quality drug administered [Recovered/Resolved]
  - Depression [Recovered/Resolved]
  - Withdrawal syndrome [Recovered/Resolved]
  - Pain [Recovered/Resolved]
  - Product quality issue [Unknown]
  - Product quality issue [Unknown]
  - Drug ineffective [Recovered/Resolved]
